FAERS Safety Report 4622188-X (Version None)
Quarter: 2005Q1

REPORT INFORMATION
  Report Type: 
  Country: None (occurrence: None)
  Receive Date: 20050330
  Receipt Date: 20050314
  Transmission Date: 20050727
  Serious: Yes (Hospitalization)
  Sender: FDA-Public Use
  Company Number: FR-RB-1397-2005

PATIENT
  Age: 27 Year
  Sex: Male

DRUGS (3)
  1. BUPRENORPHINE HCL [Suspect]
     Indication: DRUG WITHDRAWAL MAINTENANCE THERAPY
     Route: 048
  2. DEXTROPRPOXYPHENE, PARACETAMOL [Suspect]
     Route: 048
     Dates: start: 20050213, end: 20050214
  3. TRAMADOL HCL [Suspect]
     Route: 048
     Dates: start: 20050213, end: 20050214

REACTIONS (5)
  - DRUG INTERACTION [None]
  - INTENTIONAL MISUSE [None]
  - OVERDOSE [None]
  - TEETHING [None]
  - TOOTHACHE [None]
